FAERS Safety Report 19328101 (Version 2)
Quarter: 2021Q2

REPORT INFORMATION
  Report Type: Spontaneous
  Country: JP (occurrence: JP)
  Receive Date: 20210528
  Receipt Date: 20210615
  Transmission Date: 20210717
  Serious: Yes (Other)
  Sender: FDA-Public Use
  Company Number: JP-EXELIXIS-CABO-21040871

PATIENT
  Age: 62 Year
  Sex: Female

DRUGS (1)
  1. CABOMETYX [Suspect]
     Active Substance: CABOZANTINIB S-MALATE
     Indication: RENAL CELL CARCINOMA
     Dosage: UNK
     Route: 048
     Dates: start: 202102, end: 202103

REACTIONS (3)
  - Condition aggravated [Unknown]
  - Renal impairment [Not Recovered/Not Resolved]
  - Renal cell carcinoma [Unknown]

NARRATIVE: CASE EVENT DATE: 202103
